FAERS Safety Report 7399711-8 (Version None)
Quarter: 2011Q2

REPORT INFORMATION
  Report Type: 
  Country: None (occurrence: None)
  Receive Date: 20110405
  Receipt Date: 20110405
  Transmission Date: 20111010
  Serious: Yes (Other)
  Sender: FDA-Public Use
  Company Number: None

PATIENT
  Sex: Female
  Weight: 95.2554 kg

DRUGS (1)
  1. BONIVA [Suspect]
     Indication: BONE DENSITY DECREASED
     Dosage: BONIVA INJECTION EVERY 3 MONTHS
     Dates: start: 20110225

REACTIONS (9)
  - BACK PAIN [None]
  - DYSPNOEA [None]
  - NECK PAIN [None]
  - ARTHRALGIA [None]
  - MUSCULOSKELETAL PAIN [None]
  - DIARRHOEA [None]
  - VOMITING [None]
  - DRUG HYPERSENSITIVITY [None]
  - RETCHING [None]
